FAERS Safety Report 16831319 (Version 2)
Quarter: 2019Q3

REPORT INFORMATION
  Report Type: Spontaneous
  Country: TR (occurrence: TR)
  Receive Date: 20190920
  Receipt Date: 20190923
  Transmission Date: 20191005
  Serious: Yes (Other)
  Sender: FDA-Public Use
  Company Number: PHHY2019TR216192

PATIENT
  Age: 47 Year
  Sex: Male

DRUGS (1)
  1. VERMIDON [Suspect]
     Active Substance: ACETAMINOPHEN\CAFFEINE
     Indication: PRODUCT USED FOR UNKNOWN INDICATION
     Dosage: UNK (4 TO 5 TIMES PER DAY)
     Route: 065

REACTIONS (5)
  - Neoplasm malignant [Recovering/Resolving]
  - Product contamination [Unknown]
  - Dyspnoea [Unknown]
  - Memory impairment [Unknown]
  - Viral test positive [Unknown]
